FAERS Safety Report 24965057 (Version 3)
Quarter: 2025Q3

REPORT INFORMATION
  Report Type: Spontaneous
  Country: CN (occurrence: CN)
  Receive Date: 20250213
  Receipt Date: 20250919
  Transmission Date: 20251020
  Serious: Yes (Hospitalization)
  Sender: CHEPLAPHARM
  Company Number: CN-ROCHE-3218286

PATIENT
  Age: 68 Year
  Sex: Male
  Weight: 72.25 kg

DRUGS (25)
  1. CAPECITABINE [Suspect]
     Active Substance: CAPECITABINE
     Indication: Adenosquamous cell carcinoma
     Dosage: ON 30/SEP/2022, RECEIVED MOST RECENT DOSE OF LAST STUDY CAPECITABINE PRIOR TO ADVERSE EVENT (AE) WAS
     Route: 048
     Dates: start: 20220527
  2. ATEZOLIZUMAB [Suspect]
     Active Substance: ATEZOLIZUMAB
     Indication: Adenosquamous cell carcinoma
     Dosage: START DATE OF MOST RECENT DOSE OF STUDY DRUG PRIOR TO AE ON 21-OCT-2022 AT 1200 MG
     Route: 042
     Dates: start: 20220527
  3. ATEZOLIZUMAB [Suspect]
     Active Substance: ATEZOLIZUMAB
     Indication: Adenosquamous cell carcinoma
  4. OXALIPLATIN [Suspect]
     Active Substance: OXALIPLATIN
     Indication: Adenosquamous cell carcinoma
     Dosage: ON 30/SEP/2022, RECEIVED MOST RECENT DOSE OF LAST STUDY OXALIPLATIN PRIOR TO ADVERSE EVENT (AE) 2...
     Route: 042
     Dates: start: 20220527
  5. METHYLCOBALAMIN [Concomitant]
     Active Substance: METHYLCOBALAMIN
     Route: 048
     Dates: start: 20220708
  6. PREGABALIN [Concomitant]
     Active Substance: PREGABALIN
     Route: 048
     Dates: start: 20220708
  7. SODIUM CHLORIDE [Concomitant]
     Active Substance: SODIUM CHLORIDE
     Indication: Hyponatraemia
     Route: 042
     Dates: start: 20221110, end: 20221114
  8. SODIUM CHLORIDE [Concomitant]
     Active Substance: SODIUM CHLORIDE
     Indication: Hyponatraemia
     Route: 042
     Dates: start: 20221115, end: 20221116
  9. MAGNESIUM ISOGLYCYRRHIZINATE [Concomitant]
     Active Substance: MAGNESIUM ISOGLYCYRRHIZINATE
     Dates: start: 20221110, end: 20221117
  10. GLYCERIN [Concomitant]
     Active Substance: GLYCERIN
     Dates: start: 20221110, end: 20221110
  11. STRUCTURAL FAT EMULSION INJECTION (C6-24) [Concomitant]
     Indication: Nutritional supplementation
     Route: 042
     Dates: start: 20221110, end: 20221116
  12. STRUCTURAL FAT EMULSION INJECTION (C6-24) [Concomitant]
     Indication: Nutritional supplementation
     Dates: start: 20221115, end: 20221116
  13. ELECTROLYTES NOS\MINERALS [Concomitant]
     Active Substance: ELECTROLYTES NOS\MINERALS
     Route: 042
     Dates: start: 20221110, end: 20221110
  14. CALCIUM GLUCONATE [Concomitant]
     Active Substance: CALCIUM GLUCONATE
     Indication: Calcium deficiency
     Dates: start: 20221110, end: 20221110
  15. CALCIUM GLUCONATE [Concomitant]
     Active Substance: CALCIUM GLUCONATE
     Indication: Calcium deficiency
     Dates: start: 20221110, end: 20221116
  16. MAGNESIUM SULFATE [Concomitant]
     Active Substance: MAGNESIUM SULFATE
     Indication: Seizure
     Route: 042
     Dates: start: 20221110, end: 20221116
  17. POTASSIUM CHLORIDE [Concomitant]
     Active Substance: POTASSIUM CHLORIDE
     Dates: start: 20221110, end: 20221116
  18. INSULIN NOS [Concomitant]
     Active Substance: INSULIN NOS
     Dates: start: 20221110, end: 20221116
  19. OMEPRAZOLE SODIUM [Concomitant]
     Active Substance: OMEPRAZOLE SODIUM
     Dates: start: 20221110, end: 20221117
  20. LIDOCAINE HYDROCHLORIDE [Concomitant]
     Active Substance: LIDOCAINE HYDROCHLORIDE
     Indication: Local anaesthesia
     Dates: start: 20221111, end: 20221111
  21. APREPITANT [Concomitant]
     Active Substance: APREPITANT
     Indication: Vomiting
     Route: 048
     Dates: start: 20220617
  22. HEPARIN SODIUM [Concomitant]
     Active Substance: HEPARIN SODIUM
     Dates: start: 20221110, end: 20221110
  23. HEPARIN SODIUM [Concomitant]
     Active Substance: HEPARIN SODIUM
     Dates: start: 20221110, end: 20221116
  24. ENTERAL NUTRITIONAL POWDER (TP) [Concomitant]
     Indication: Nutritional supplementation
     Dates: start: 20220819
  25. ENTERAL NUTRITIONAL POWDER (TP) [Concomitant]
     Indication: Nutritional supplementation
     Route: 048
     Dates: start: 20220930, end: 20221010

REACTIONS (1)
  - Small intestinal obstruction [Recovered/Resolved]

NARRATIVE: CASE EVENT DATE: 20221108
